FAERS Safety Report 7220340-0 (Version None)
Quarter: 2011Q1

REPORT INFORMATION
  Report Type: 
  Country: None (occurrence: None)
  Receive Date: 20110111
  Receipt Date: 20101229
  Transmission Date: 20110831
  Serious: Yes (Hospitalization, Other)
  Sender: FDA-Public Use
  Company Number: JP-CELGENEUS-087-21880-10102934

PATIENT
  Sex: Female

DRUGS (14)
  1. UBRETID [Concomitant]
     Route: 048
     Dates: end: 20101018
  2. REVLIMID [Suspect]
     Route: 048
     Dates: start: 20101008, end: 20101009
  3. DECADRON [Concomitant]
     Route: 048
     Dates: start: 20101006, end: 20101009
  4. CORTRIL [Concomitant]
     Route: 048
     Dates: end: 20101018
  5. FLUCONARL [Concomitant]
     Indication: PROPHYLAXIS
     Route: 048
     Dates: end: 20101018
  6. GOSHAJINKIGAN [Concomitant]
     Route: 048
     Dates: end: 20101018
  7. REVLIMID [Suspect]
     Indication: MULTIPLE MYELOMA
     Route: 048
     Dates: start: 20100922, end: 20101002
  8. BAKTAR [Concomitant]
     Indication: PROPHYLAXIS
     Route: 048
     Dates: end: 20101018
  9. TRYPTANOL [Concomitant]
     Route: 048
     Dates: end: 20101018
  10. EBRANTIL [Concomitant]
     Route: 048
     Dates: end: 20101018
  11. DECADRON [Concomitant]
     Indication: MULTIPLE MYELOMA
     Route: 048
     Dates: start: 20100922, end: 20100925
  12. GABAPENTIN [Concomitant]
     Route: 048
     Dates: end: 20101018
  13. ASPIRIN [Concomitant]
     Indication: PROPHYLAXIS
     Route: 048
     Dates: start: 20100922, end: 20101018
  14. ZOMETA [Concomitant]
     Indication: MULTIPLE MYELOMA
     Route: 051
     Dates: start: 20100921, end: 20100921

REACTIONS (5)
  - BLADDER DISORDER [None]
  - ANORECTAL DISORDER [None]
  - MOVEMENT DISORDER [None]
  - RASH [None]
  - NEUROPATHY PERIPHERAL [None]
